FAERS Safety Report 4428318-7 (Version None)
Quarter: 2004Q3

REPORT INFORMATION
  Report Type: 
  Country: None (occurrence: None)
  Receive Date: 20040818
  Receipt Date: 20040809
  Transmission Date: 20050211
  Serious: Yes (Other)
  Sender: FDA-Public Use
  Company Number: GB-JNJFOC-20040802458

PATIENT
  Sex: Male

DRUGS (7)
  1. REMICADE [Suspect]
     Route: 042
  2. METHOTREXATE [Concomitant]
  3. VENLAFAXINE HCL [Concomitant]
  4. METOCLOPRAMIDE [Concomitant]
  5. CO-CODAMOL [Concomitant]
  6. CO-CODAMOL [Concomitant]
  7. ETORICOXIB [Concomitant]

REACTIONS (1)
  - URINARY INCONTINENCE [None]
